FAERS Safety Report 12646974 (Version 1)
Quarter: 2016Q3

REPORT INFORMATION
  Report Type: Spontaneous
  Country: US (occurrence: None)
  Receive Date: 20160811
  Receipt Date: 20160811
  Transmission Date: 20161109
  Serious: No
  Sender: FDA-Public Use
  Company Number: None

PATIENT
  Age: 55 Year
  Sex: Female
  Weight: 58.97 kg

DRUGS (3)
  1. FLUOXETINE [Suspect]
     Active Substance: FLUOXETINE HYDROCHLORIDE
     Indication: OBSESSIVE-COMPULSIVE DISORDER
     Dosage: 1 CAPSULE(S) ONCE A DAY TAKEN BY MOUTH
     Route: 048
  2. PROZAC [Concomitant]
     Active Substance: FLUOXETINE HYDROCHLORIDE
  3. CALCIUM [Concomitant]
     Active Substance: CALCIUM

REACTIONS (4)
  - Dyspepsia [None]
  - Gastrooesophageal reflux disease [None]
  - Oesophageal stenosis [None]
  - Product substitution issue [None]

NARRATIVE: CASE EVENT DATE: 20090601
